FAERS Safety Report 8892702 (Version 1)
Quarter: 2012Q4

REPORT INFORMATION
  Report Type: Spontaneous
  Country: US (occurrence: None)
  Receive Date: 20121105
  Receipt Date: 20121105
  Transmission Date: 20130627
  Serious: Yes (Other)
  Sender: FDA-Public Use
  Company Number: None

PATIENT
  Age: 32 Year
  Sex: Male
  Weight: 65.77 kg

DRUGS (1)
  1. OLANZAPINE [Suspect]
     Indication: APPETITE STIMULATED
     Route: 048
     Dates: start: 20121031, end: 20121101

REACTIONS (5)
  - Hypersensitivity [None]
  - Paraesthesia [None]
  - Neuralgia [None]
  - Chest pain [None]
  - Product formulation issue [None]
